FAERS Safety Report 11507806 (Version 2)
Quarter: 2015Q4

REPORT INFORMATION
  Report Type: Spontaneous
  Country: TW (occurrence: TW)
  Receive Date: 20150915
  Receipt Date: 20151006
  Transmission Date: 20160304
  Serious: Yes (Other)
  Sender: FDA-Public Use
  Company Number: TW-PFIZER INC-2015297137

PATIENT
  Age: 56 Year
  Sex: Female

DRUGS (2)
  1. PREMARIN [Suspect]
     Active Substance: ESTROGENS, CONJUGATED
     Dosage: 1 DF, 1X/DAY
     Route: 067
  2. PREMARIN [Suspect]
     Active Substance: ESTROGENS, CONJUGATED
     Dosage: 1 DF, 1X/DAY
     Route: 067
     Dates: start: 20150812, end: 20150902

REACTIONS (7)
  - Wrong technique in product usage process [Unknown]
  - Dysuria [Recovering/Resolving]
  - Abdominal pain lower [Recovering/Resolving]
  - Urine output increased [Recovering/Resolving]
  - Product quality issue [Unknown]
  - Urinary tract inflammation [Recovered/Resolved]
  - Vulvovaginal pain [Recovered/Resolved]
